FAERS Safety Report 5626349-2 (Version None)
Quarter: 2008Q1

REPORT INFORMATION
  Report Type: 
  Country: None (occurrence: None)
  Receive Date: 20080214
  Receipt Date: 20080208
  Transmission Date: 20080703
  Serious: Yes (Hospitalization)
  Sender: FDA-Public Use
  Company Number: DE-AVENTIS-200810384DE

PATIENT
  Age: 42 Year
  Sex: Female

DRUGS (3)
  1. LEFLUNOMIDE [Suspect]
     Indication: ARTHRITIS
     Route: 048
     Dates: start: 20000401, end: 20000401
  2. LEFLUNOMIDE [Suspect]
     Route: 048
     Dates: start: 20000401, end: 20000101
  3. PREDNISOLONE [Concomitant]
     Indication: ARTHRITIS
     Route: 048

REACTIONS (5)
  - CONDITION AGGRAVATED [None]
  - CUTANEOUS LUPUS ERYTHEMATOSUS [None]
  - GENERALISED ERYTHEMA [None]
  - SCAB [None]
  - SKIN ULCER [None]
